FAERS Safety Report 10258841 (Version 2)
Quarter: 2014Q2

REPORT INFORMATION
  Report Type: Spontaneous
  Country: US (occurrence: US)
  Receive Date: 20140625
  Receipt Date: 20140625
  Transmission Date: 20141212
  Serious: No
  Sender: FDA-Public Use
  Company Number: US-ASTELLAS-2013US007859

PATIENT
  Age: 73 Year
  Sex: Male

DRUGS (2)
  1. VESICARE [Suspect]
     Indication: HYPERTONIC BLADDER
     Route: 048
     Dates: start: 20130408, end: 20130429
  2. VESICARE [Suspect]
     Indication: MICTURITION URGENCY

REACTIONS (2)
  - Breast tenderness [Recovering/Resolving]
  - Pruritus [Recovered/Resolved]
